FAERS Safety Report 5900893-2 (Version None)
Quarter: 2008Q3

REPORT INFORMATION
  Report Type: 
  Country: None (occurrence: None)
  Receive Date: 20080929
  Receipt Date: 20080923
  Transmission Date: 20090109
  Serious: Yes (Other)
  Sender: FDA-Public Use
  Company Number: PHHY2008BR14457

PATIENT
  Age: 82 Year
  Sex: Male

DRUGS (1)
  1. EXELON [Suspect]
     Dosage: 18 MG/10 CM2
     Route: 062

REACTIONS (3)
  - DYSPHASIA [None]
  - GAIT DISTURBANCE [None]
  - SOMNOLENCE [None]
